FAERS Safety Report 7920613-X (Version None)
Quarter: 2011Q4

REPORT INFORMATION
  Report Type: 
  Country: None (occurrence: None)
  Receive Date: 20111117
  Receipt Date: 20111114
  Transmission Date: 20120403
  Serious: Yes (Life-Threatening, Hospitalization, Other)
  Sender: FDA-Public Use
  Company Number: PHHY2011BE92519

PATIENT
  Sex: Female

DRUGS (1)
  1. AFINITOR [Suspect]
     Indication: RENAL CELL CARCINOMA
     Dosage: 10 MG, UNK
     Dates: start: 20110501, end: 20111024

REACTIONS (5)
  - NECROSIS [None]
  - OPPORTUNISTIC INFECTION [None]
  - ASPERGILLOSIS [None]
  - GANGRENE [None]
  - APHTHOUS STOMATITIS [None]
